FAERS Safety Report 5031209-4 (Version None)
Quarter: 2006Q2

REPORT INFORMATION
  Report Type: 
  Country: None (occurrence: None)
  Receive Date: 20060621
  Receipt Date: 20060327
  Transmission Date: 20061013
  Serious: No
  Sender: FDA-Public Use
  Company Number: US-GLAXOSMITHKLINE-A0599139A

PATIENT
  Age: 86 Year
  Sex: Female

DRUGS (6)
  1. AVANDARYL [Suspect]
     Dosage: 2MG PER DAY
     Route: 048
  2. TOPROL-XL [Concomitant]
  3. CARDIZEM [Concomitant]
  4. THEO-DUR [Concomitant]
  5. ZANTAC [Concomitant]
  6. VITAMINS [Concomitant]

REACTIONS (1)
  - JOINT SWELLING [None]
